FAERS Safety Report 6986573-3 (Version None)
Quarter: 2010Q3

REPORT INFORMATION
  Report Type: 
  Country: None (occurrence: None)
  Receive Date: 20100915
  Receipt Date: 20090721
  Transmission Date: 20110219
  Serious: No
  Sender: FDA-Public Use
  Company Number: US-WYE-H10250009

PATIENT
  Sex: Female
  Weight: 79.45 kg

DRUGS (3)
  1. PRISTIQ [Suspect]
     Indication: DEPRESSION
     Route: 048
     Dates: start: 20090101
  2. XANAX [Concomitant]
  3. ATENOLOL [Concomitant]

REACTIONS (2)
  - CONSTIPATION [None]
  - VISION BLURRED [None]
